FAERS Safety Report 8198907-5 (Version None)
Quarter: 2012Q1

REPORT INFORMATION
  Report Type: 
  Country: None (occurrence: None)
  Receive Date: 20120309
  Receipt Date: 20120223
  Transmission Date: 20120608
  Serious: No
  Sender: FDA-Public Use
  Company Number: US-AMGEN-USASP2012008559

PATIENT
  Age: 53 Year
  Sex: Female
  Weight: 73.469 kg

DRUGS (2)
  1. PROLIA [Suspect]
     Dosage: UNK
     Route: 058
     Dates: start: 20120203
  2. PROLIA [Suspect]
     Indication: OSTEOPOROSIS POSTMENOPAUSAL
     Dosage: UNK
     Route: 058
     Dates: start: 20110707

REACTIONS (3)
  - ARTHRALGIA [None]
  - BONE PAIN [None]
  - MIGRAINE [None]
